FAERS Safety Report 17204965 (Version 2)
Quarter: 2020Q1

REPORT INFORMATION
  Report Type: Report from Study
  Country: None (occurrence: ES)
  Receive Date: 20191227
  Receipt Date: 20200207
  Transmission Date: 20200409
  Serious: Yes (Hospitalization)
  Sender: FDA-Public Use
  Company Number: ES-ABBVIE-19K-144-3208789-00

PATIENT
  Age: 53 Year
  Sex: Male

DRUGS (2)
  1. DUODOPA [Suspect]
     Active Substance: CARBIDOPA\LEVODOPA
     Dosage: ADJUSTING DOSE OF DUODOPA UPWARDS
     Route: 050
     Dates: start: 20191220, end: 20200203
  2. DUODOPA [Suspect]
     Active Substance: CARBIDOPA\LEVODOPA
     Indication: PARKINSON^S DISEASE
     Route: 050
     Dates: start: 20150708, end: 20191220

REACTIONS (6)
  - Fall [Recovered/Resolved]
  - Device use issue [Unknown]
  - Fall [Not Recovered/Not Resolved]
  - Device breakage [Unknown]
  - Balance disorder [Not Recovered/Not Resolved]
  - Freezing phenomenon [Recovered/Resolved]

NARRATIVE: CASE EVENT DATE: 2019
